FAERS Safety Report 4441906-7 (Version None)
Quarter: 2004Q3

REPORT INFORMATION
  Report Type: 
  Country: None (occurrence: None)
  Receive Date: 20040903
  Receipt Date: 20040603
  Transmission Date: 20050211
  Serious: Yes (Other)
  Sender: FDA-Public Use
  Company Number: 2004UW11568

PATIENT
  Age: 77 Year
  Sex: Female
  Weight: 72.5755 kg

DRUGS (4)
  1. CRESTOR [Suspect]
     Indication: BLOOD CHOLESTEROL INCREASED
     Dosage: 10 MG PO
     Route: 048
  2. PROCARDIA [Concomitant]
  3. SYNTHROID [Concomitant]
  4. NEUTRONTIN [Concomitant]

REACTIONS (2)
  - FEELING ABNORMAL [None]
  - SPEECH DISORDER [None]
